FAERS Safety Report 12270730 (Version 1)
Quarter: 2016Q2

REPORT INFORMATION
  Report Type: Spontaneous
  Country: US (occurrence: None)
  Receive Date: 20160414
  Receipt Date: 20160414
  Transmission Date: 20160815
  Serious: No
  Sender: FDA-Public Use
  Company Number: None

PATIENT
  Age: 67 Year
  Sex: Female
  Weight: 86.18 kg

DRUGS (13)
  1. DILAUDID [Concomitant]
     Active Substance: HYDROMORPHONE HYDROCHLORIDE
  2. ZYPREXA [Suspect]
     Active Substance: OLANZAPINE
     Indication: DEPRESSION
     Route: 048
     Dates: start: 201601
  3. MELATONIN [Concomitant]
     Active Substance: MELATONIN
  4. VITAMIN E [Concomitant]
     Active Substance: .ALPHA.-TOCOPHEROL
  5. FLAVOLAMINE [Concomitant]
  6. VITAMIN D3 [Concomitant]
     Active Substance: CHOLECALCIFEROL
  7. BIOTIN [Concomitant]
     Active Substance: BIOTIN
  8. VALIUM [Concomitant]
     Active Substance: DIAZEPAM
  9. MAGNESIUM [Concomitant]
     Active Substance: MAGNESIUM
  10. PROBIOTIC [Concomitant]
     Active Substance: PROBIOTICS NOS
  11. CALCIUM [Concomitant]
     Active Substance: CALCIUM
  12. FOSAMAX [Concomitant]
     Active Substance: ALENDRONATE SODIUM
  13. VYVANSE [Concomitant]
     Active Substance: LISDEXAMFETAMINE DIMESYLATE

REACTIONS (2)
  - Diabetes mellitus [None]
  - Weight increased [None]

NARRATIVE: CASE EVENT DATE: 20160103
